FAERS Safety Report 18923789 (Version 2)
Quarter: 2021Q1

REPORT INFORMATION
  Report Type: Report from Study
  Country: US (occurrence: US)
  Receive Date: 20210222
  Receipt Date: 20210322
  Transmission Date: 20210420
  Serious: Yes (Hospitalization)
  Sender: FDA-Public Use
  Company Number: US-JNJFOC-20210225487

PATIENT
  Age: 69 Year
  Sex: Female
  Weight: 73.6 kg

DRUGS (4)
  1. SELEXIPAG [Suspect]
     Active Substance: SELEXIPAG
     Indication: PULMONARY ARTERIAL HYPERTENSION
     Route: 048
  2. WARFARIN [Concomitant]
     Active Substance: WARFARIN
  3. SILDENAFIL CITRATE. [Suspect]
     Active Substance: SILDENAFIL CITRATE
  4. SELEXIPAG [Suspect]
     Active Substance: SELEXIPAG
     Route: 048

REACTIONS (19)
  - Nausea [Unknown]
  - Decreased activity [Unknown]
  - Head discomfort [Unknown]
  - Muscle disorder [Unknown]
  - Pain in extremity [Unknown]
  - Bone pain [Unknown]
  - Hypersensitivity [Unknown]
  - Pain [Unknown]
  - Abdominal discomfort [Not Recovered/Not Resolved]
  - Insomnia [Unknown]
  - Arthritis [Unknown]
  - Fatigue [Unknown]
  - Feeling abnormal [Unknown]
  - Headache [Unknown]
  - Weight decreased [Unknown]
  - Decreased appetite [Unknown]
  - Cardiac pacemaker insertion [Unknown]
  - Dry mouth [Not Recovered/Not Resolved]
  - Libido increased [Unknown]

NARRATIVE: CASE EVENT DATE: 20210212
